FAERS Safety Report 15233318 (Version 2)
Quarter: 2021Q1

REPORT INFORMATION
  Report Type: Spontaneous
  Country: US (occurrence: US)
  Receive Date: 20180802
  Receipt Date: 20210326
  Transmission Date: 20210419
  Serious: Yes (Disabling)
  Sender: FDA-Public Use
  Company Number: US-TEVA-2018-US-934844

PATIENT
  Age: 58 Year
  Sex: Female
  Weight: 81 kg

DRUGS (10)
  1. GABAPENTIN. [Concomitant]
     Active Substance: GABAPENTIN
     Dosage: DOSAGE : 300 MG
     Route: 048
     Dates: start: 20160101
  2. CARBOPLATIN. [Concomitant]
     Active Substance: CARBOPLATIN
     Indication: BREAST CANCER FEMALE
     Dosage: NUMBER OF CYCLES : 4, FREQUENCY ? EVERY THREE WEEKS
     Route: 065
     Dates: start: 20160501, end: 20160715
  3. PERJETA [Concomitant]
     Active Substance: PERTUZUMAB
     Indication: BREAST CANCER FEMALE
     Dosage: NUMBER OF CYCLES : 4, FREQUENCY ? EVERY THREE WEEKS
     Route: 065
     Dates: start: 20160501, end: 20160715
  4. IBUPROFEN. [Concomitant]
     Active Substance: IBUPROFEN
  5. DOCETAXEL. [Suspect]
     Active Substance: DOCETAXEL
     Indication: BREAST CANCER FEMALE
     Dosage: DOSAGE : 135MG, NUMBER OF CYCLES : 4, FREQUENCY ? EVERY THREE WEEKS
     Route: 065
     Dates: start: 20160501, end: 20160715
  6. METFORMIN [Concomitant]
     Active Substance: METFORMIN HYDROCHLORIDE
     Dosage: 1000 MG
     Route: 048
     Dates: start: 20160101, end: 20170101
  7. LISINOPRIL. [Concomitant]
     Active Substance: LISINOPRIL
  8. HERCEPTIN [Concomitant]
     Active Substance: TRASTUZUMAB
     Indication: BREAST CANCER FEMALE
     Dosage: NUMBER OF CYCLES : 4, FREQUENCY ? EVERY THREE WEEKS
     Route: 065
     Dates: start: 20160501, end: 20160715
  9. ATORVASTATIN [Concomitant]
     Active Substance: ATORVASTATIN
  10. ONDANSETRON [Concomitant]
     Active Substance: ONDANSETRON

REACTIONS (5)
  - Madarosis [Not Recovered/Not Resolved]
  - Alopecia areata [Not Recovered/Not Resolved]
  - Hair colour changes [Not Recovered/Not Resolved]
  - Alopecia totalis [Not Recovered/Not Resolved]
  - Hair texture abnormal [Not Recovered/Not Resolved]

NARRATIVE: CASE EVENT DATE: 20170501
